FAERS Safety Report 7624254-3 (Version None)
Quarter: 2011Q3

REPORT INFORMATION
  Report Type: 
  Country: None (occurrence: None)
  Receive Date: 20110719
  Receipt Date: 20110719
  Transmission Date: 20111222
  Serious: No
  Sender: FDA-Public Use
  Company Number: None

PATIENT
  Sex: Female
  Weight: 59.8748 kg

DRUGS (2)
  1. TRIHEXYPHENIDYL HCL [Suspect]
     Indication: PARKINSON'S DISEASE
     Dosage: 1/2 2 TIMES 2 DAYS 1- 2 TIMES 2 DAYS; 1- 3 TIMES DAILY
     Dates: start: 20110526, end: 20110530
  2. TRIHEXYPHENIDYL HCL [Suspect]
     Indication: TREMOR
     Dosage: 1/2 2 TIMES 2 DAYS 1- 2 TIMES 2 DAYS; 1- 3 TIMES DAILY
     Dates: start: 20110526, end: 20110530

REACTIONS (1)
  - HALLUCINATION, VISUAL [None]
